FAERS Safety Report 9460881 (Version 1)
Quarter: 2013Q3

REPORT INFORMATION
  Report Type: Report from Study
  Country: CH (occurrence: CH)
  Receive Date: 20130816
  Receipt Date: 20130816
  Transmission Date: 20140515
  Serious: Yes (Other)
  Sender: FDA-Public Use
  Company Number: CH-ROCHE-1260098

PATIENT
  Sex: Female

DRUGS (2)
  1. HERCEPTIN [Suspect]
     Indication: BREAST CANCER METASTATIC
     Route: 042
     Dates: start: 2012, end: 2013
  2. TAXOL [Concomitant]
     Indication: BREAST CANCER METASTATIC
     Route: 065
     Dates: start: 2012, end: 2013

REACTIONS (1)
  - Disease progression [Unknown]
